FAERS Safety Report 4340938-7 (Version None)
Quarter: 2004Q2

REPORT INFORMATION
  Report Type: 
  Country: None (occurrence: None)
  Receive Date: 20040419
  Receipt Date: 20040324
  Transmission Date: 20050107
  Serious: Yes (Disabling)
  Sender: FDA-Public Use
  Company Number: JP-BRISTOL-MYERS SQUIBB COMPANY-12541553

PATIENT
  Age: 73 Year
  Sex: Male

DRUGS (6)
  1. PARAPLATIN [Suspect]
     Indication: BLADDER CANCER
     Route: 042
     Dates: start: 20040302, end: 20040302
  2. TAXOL [Suspect]
     Indication: BLADDER CANCER
     Route: 042
     Dates: start: 20040302, end: 20040302
  3. DEXAMETHASONE SODIUM PHOSPHATE [Suspect]
     Route: 042
     Dates: start: 20040302, end: 20040302
  4. RAMOSETRON HCL [Suspect]
     Route: 042
     Dates: start: 20040302, end: 20040303
  5. FAMOTIDINE [Suspect]
     Route: 042
     Dates: start: 20040302, end: 20040302
  6. CHLORPHENIRAMINE MALEATE [Suspect]
     Route: 048
     Dates: start: 20040302, end: 20040302

REACTIONS (1)
  - CEREBRAL INFARCTION [None]
